FAERS Safety Report 7801267-X (Version None)
Quarter: 2011Q4

REPORT INFORMATION
  Report Type: 
  Country: None (occurrence: None)
  Receive Date: 20111007
  Receipt Date: 20110929
  Transmission Date: 20120403
  Serious: No
  Sender: FDA-Public Use
  Company Number: US-BIOGENIDEC-2011BI037416

PATIENT
  Age: 54 Year
  Sex: Female

DRUGS (4)
  1. AVONEX [Suspect]
     Indication: MULTIPLE SCLEROSIS
     Route: 030
     Dates: start: 20100401, end: 20100501
  2. TOPAMAX [Concomitant]
     Indication: MIGRAINE
  3. IMITREX [Concomitant]
     Indication: MIGRAINE
  4. FOSAMAX [Concomitant]
     Indication: OSTEOPOROSIS

REACTIONS (10)
  - TENSION HEADACHE [None]
  - INJECTION SITE PAIN [None]
  - DEMENTIA ALZHEIMER'S TYPE [None]
  - FUNGAL INFECTION [None]
  - INJECTION SITE RASH [None]
  - MIGRAINE [None]
  - DIARRHOEA [None]
  - VOMITING [None]
  - DYSURIA [None]
  - INFLUENZA LIKE ILLNESS [None]
